FAERS Safety Report 24531184 (Version 2)
Quarter: 2025Q3

REPORT INFORMATION
  Report Type: Spontaneous
  Country: CN (occurrence: CN)
  Receive Date: 20241022
  Receipt Date: 20250809
  Transmission Date: 20251021
  Serious: Yes (Hospitalization, Other)
  Sender: ALEXION PHARMACEUTICALS
  Company Number: CN-ASTRAZENECA-202410CHN000826CN

PATIENT
  Age: 62 Year
  Sex: Female
  Weight: 65 kg

DRUGS (2)
  1. IMFINZI [Suspect]
     Active Substance: DURVALUMAB
     Indication: Chemotherapy
     Dosage: 1 GRAM, QD
     Dates: start: 20240902, end: 20240902
  2. TEGAFUR [Suspect]
     Active Substance: TEGAFUR
     Indication: Prophylaxis of nausea and vomiting
     Dosage: 50 MICROGRAM, BID
     Dates: start: 20240902, end: 20240915

REACTIONS (1)
  - Myelosuppression [Recovering/Resolving]

NARRATIVE: CASE EVENT DATE: 20240925
